FAERS Safety Report 7492556-X (Version None)
Quarter: 2011Q2

REPORT INFORMATION
  Report Type: 
  Country: None (occurrence: None)
  Receive Date: 20110519
  Receipt Date: 20110413
  Transmission Date: 20111010
  Serious: No
  Sender: FDA-Public Use
  Company Number: US-BAYER-2011-033526

PATIENT
  Sex: Male
  Weight: 88 kg

DRUGS (2)
  1. PREVACID [Concomitant]
  2. ALEVE (CAPLET) [Suspect]
     Indication: BACK PAIN
     Dosage: UNK
     Route: 048

REACTIONS (1)
  - BACK PAIN [None]
